FAERS Safety Report 22085919 (Version 1)
Quarter: 2023Q1

REPORT INFORMATION
  Report Type: Spontaneous
  Country: US (occurrence: None)
  Receive Date: 20230310
  Receipt Date: 20230310
  Transmission Date: 20230417
  Serious: No
  Sender: FDA-Public Use
  Company Number: None

PATIENT
  Age: 63 Year
  Sex: Female
  Weight: 69.85 kg

DRUGS (9)
  1. IBRANCE [Suspect]
     Active Substance: PALBOCICLIB
     Indication: Breast cancer female
     Dosage: OTHER FREQUENCY : 21D ON 7D OFF;?
     Route: 048
     Dates: start: 202205, end: 202302
  2. AMOXICILLIN [Concomitant]
     Active Substance: AMOXICILLIN
  3. CULTRELLE [Concomitant]
  4. EYE MULTIVITAMIN/LUTEIN [Concomitant]
  5. MULTIVITAMIN ADULTS [Concomitant]
  6. OSCAL [Concomitant]
     Active Substance: CALCIUM CARBONATE
  7. OXCARBAZEPINE [Concomitant]
     Active Substance: OXCARBAZEPINE
  8. TRAMADOL [Concomitant]
     Active Substance: TRAMADOL
  9. XARELTO [Concomitant]
     Active Substance: RIVAROXABAN

REACTIONS (3)
  - Exposed bone in jaw [None]
  - Metastases to bone [None]
  - Therapy interrupted [None]
